FAERS Safety Report 6833455-3 (Version None)
Quarter: 2010Q3

REPORT INFORMATION
  Report Type: 
  Country: None (occurrence: None)
  Receive Date: 20100712
  Receipt Date: 20070510
  Transmission Date: 20110219
  Serious: No
  Sender: FDA-Public Use
  Company Number: US-PFIZER INC-2007025213

PATIENT
  Age: 33 Year
  Sex: Female
  Weight: 59.87 kg

DRUGS (1)
  1. CHANTIX [Suspect]
     Indication: SMOKING CESSATION THERAPY
     Dates: start: 20070304, end: 20070317

REACTIONS (5)
  - DIZZINESS [None]
  - FEELING ABNORMAL [None]
  - NAUSEA [None]
  - PRESYNCOPE [None]
  - UNEVALUABLE EVENT [None]
